FAERS Safety Report 4720192-4 (Version None)
Quarter: 2005Q3

REPORT INFORMATION
  Report Type: 
  Country: None (occurrence: None)
  Receive Date: 20050719
  Receipt Date: 20050711
  Transmission Date: 20060218
  Serious: Yes (Death)
  Sender: FDA-Public Use
  Company Number: 2005EU001525

PATIENT
  Age: 51 Year
  Sex: Male

DRUGS (3)
  1. PROGRAF [Suspect]
     Indication: RENAL TRANSPLANT
     Dosage: 6.00MG, UNKNOWN/D, UNK
  2. PREDNISONE [Concomitant]
  3. MYCOPHENOLATE MOFETIL (MYCOPHENOLATE MOFETIL) [Concomitant]

REACTIONS (14)
  - ASPERGILLOSIS [None]
  - BLOOD PH DECREASED [None]
  - DIALYSIS [None]
  - ISCHAEMIA [None]
  - LEUKOPENIA [None]
  - LUNG INFILTRATION [None]
  - NOSOCOMIAL INFECTION [None]
  - PNEUMONIA KLEBSIELLA [None]
  - RENAL ARTERY THROMBOSIS [None]
  - SHOCK [None]
  - STENT OCCLUSION [None]
  - THERAPY NON-RESPONDER [None]
  - THROMBOCYTOPENIA [None]
  - URETERIC STENOSIS [None]
